FAERS Safety Report 24251850 (Version 1)
Quarter: 2024Q3

REPORT INFORMATION
  Report Type: Spontaneous
  Country: US (occurrence: None)
  Receive Date: 20240827
  Receipt Date: 20240827
  Transmission Date: 20241017
  Serious: No
  Sender: ASTRAZENECA
  Company Number: 2024A177010

PATIENT
  Sex: Female

DRUGS (1)
  1. BYDUREON BCISE [Suspect]
     Active Substance: EXENATIDE

REACTIONS (19)
  - Emotional disorder [Unknown]
  - Stress [Unknown]
  - Diabetes mellitus [Unknown]
  - Trigeminal nerve disorder [Unknown]
  - Pain [Unknown]
  - Arthritis [Unknown]
  - Feeding disorder [Unknown]
  - Crying [Unknown]
  - Trigger finger [Unknown]
  - Chondropathy [Unknown]
  - Inflammation [Unknown]
  - Injection site haemorrhage [Unknown]
  - Emotional distress [Unknown]
  - Headache [Unknown]
  - Nervous system disorder [Unknown]
  - Product dose omission issue [Unknown]
  - Device issue [Unknown]
  - Ill-defined disorder [Unknown]
  - Intentional product misuse [Unknown]
